FAERS Safety Report 15548250 (Version 2)
Quarter: 2018Q4

REPORT INFORMATION
  Report Type: Spontaneous
  Country: US (occurrence: US)
  Receive Date: 20181024
  Receipt Date: 20181024
  Transmission Date: 20190205
  Serious: Yes (Hospitalization)
  Sender: FDA-Public Use
  Company Number: US-THE PROACTIV LLC-2057021

PATIENT
  Age: 68 Year
  Sex: Female

DRUGS (8)
  1. PROACTIV DEEP CLEANSING WASH [Suspect]
     Active Substance: SALICYLIC ACID
     Route: 061
     Dates: start: 20180925, end: 20180925
  2. PROACTIV MD ADAPALENE ACNE TREATMENT [Concomitant]
     Active Substance: ADAPALENE
     Route: 061
     Dates: start: 20180925, end: 20180925
  3. PROACTIV MD DEEP CLEANSING FACE WASH [Suspect]
     Active Substance: COSMETICS
     Route: 061
     Dates: start: 20180925, end: 20180925
  4. PROACTIV MD DAILY OIL CONTROL SPF 30 [Concomitant]
     Active Substance: AVOBENZONE\OCTISALATE\OCTOCRYLENE
     Route: 061
     Dates: start: 20180925, end: 20180925
  5. PROACTIV SOLUTION RENEWING CLEANSER [Suspect]
     Active Substance: BENZOYL PEROXIDE
     Indication: ACNE
     Route: 061
     Dates: start: 20180925, end: 20180925
  6. PROACTIV REPAIRING TREATMENT [Suspect]
     Active Substance: BENZOYL PEROXIDE
     Route: 061
     Dates: start: 20180925, end: 20180925
  7. PROACTIV REVITALIZING TONER [Suspect]
     Active Substance: COSMETICS
     Route: 061
     Dates: start: 20180925, end: 20180925
  8. PROACTIV GREEN TEA MOISTURIZER [Suspect]
     Active Substance: COSMETICS
     Route: 061
     Dates: start: 20180925, end: 20180925

REACTIONS (12)
  - Hypersensitivity [Recovering/Resolving]
  - Swelling face [Recovering/Resolving]
  - Dyspnoea [Recovered/Resolved]
  - Feeling hot [Recovering/Resolving]
  - Erythema [Recovering/Resolving]
  - Skin tightness [Recovering/Resolving]
  - Dysphagia [Recovered/Resolved]
  - Skin exfoliation [Recovering/Resolving]
  - Visual impairment [Recovering/Resolving]
  - Pruritus [Recovering/Resolving]
  - Eye swelling [Recovering/Resolving]
  - Pain of skin [Recovering/Resolving]

NARRATIVE: CASE EVENT DATE: 20180926
